FAERS Safety Report 9530252 (Version 1)
Quarter: 2013Q3

REPORT INFORMATION
  Report Type: Report from Study
  Country: US (occurrence: US)
  Receive Date: 20130917
  Receipt Date: 20130917
  Transmission Date: 20140515
  Serious: Yes (Hospitalization)
  Sender: FDA-Public Use
  Company Number: US-ROCHE-1275865

PATIENT
  Age: 65 Year
  Sex: Male
  Weight: 103.97 kg

DRUGS (4)
  1. ZELBORAF [Suspect]
     Indication: METASTATIC MALIGNANT MELANOMA
     Dosage: 4 TABLETS Q 12 HRS
     Route: 048
  2. NOVOLIN 70/30 [Concomitant]
     Dosage: 100 UNIT/ML  53SQ IN AM  AND 33 SQ IN PM
     Route: 058
  3. LISINOPRIL [Concomitant]
     Route: 048
  4. LIPITOR [Concomitant]
     Route: 048

REACTIONS (1)
  - Balance disorder [Unknown]
